FAERS Safety Report 5081645-5 (Version None)
Quarter: 2006Q3

REPORT INFORMATION
  Report Type: 
  Country: None (occurrence: None)
  Receive Date: 20060811
  Receipt Date: 20060802
  Transmission Date: 20061208
  Serious: Yes (Other)
  Sender: FDA-Public Use
  Company Number: 2006096285

PATIENT
  Sex: Female

DRUGS (1)
  1. FLUCONAZOLE [Suspect]
     Indication: DRUG USE FOR UNKNOWN INDICATION
     Dates: start: 20060615

REACTIONS (4)
  - ABORTION [None]
  - CHROMOSOME ABNORMALITY [None]
  - DRUG EXPOSURE BEFORE PREGNANCY [None]
  - FOETAL GROWTH RETARDATION [None]
